FAERS Safety Report 10238935 (Version 1)
Quarter: 2014Q2

REPORT INFORMATION
  Report Type: Spontaneous
  Country: ES (occurrence: None)
  Receive Date: 20140612
  Receipt Date: 20140612
  Transmission Date: 20141212
  Serious: Yes (Death, Other)
  Sender: FDA-Public Use
  Company Number: KAD201406-000580

PATIENT
  Sex: 0

DRUGS (3)
  1. RIBAVIRIN (RIBAVIRIN) [Suspect]
  2. PEGINTERFERON ALFA-2A (PEGINTERFERON ALFA-2A) [Suspect]
  3. TELAPREVIR (TELAPREVIR) [Suspect]

REACTIONS (3)
  - Aplastic anaemia [None]
  - Sepsis [None]
  - Multi-organ failure [None]
